FAERS Safety Report 23416702 (Version 1)
Quarter: 2024Q1

REPORT INFORMATION
  Report Type: Spontaneous
  Country: US (occurrence: None)
  Receive Date: 20240117
  Receipt Date: 20240117
  Transmission Date: 20240410
  Serious: Yes (Hospitalization)
  Sender: FDA-Public Use
  Company Number: None

PATIENT
  Age: 23 Month
  Sex: Female

DRUGS (2)
  1. TRACLEER [Suspect]
     Active Substance: BOSENTAN
     Indication: Pulmonary arterial hypertension
     Dosage: 16MG BID PO
     Route: 048
     Dates: start: 202312
  2. SILDENAFIL [Concomitant]
     Active Substance: SILDENAFIL

REACTIONS (1)
  - Pneumonia [None]

NARRATIVE: CASE EVENT DATE: 20240107
